FAERS Safety Report 8255935-9 (Version None)
Quarter: 2012Q2

REPORT INFORMATION
  Report Type: 
  Country: None (occurrence: None)
  Receive Date: 20120403
  Receipt Date: 20120320
  Transmission Date: 20120825
  Serious: Yes (Hospitalization, Other)
  Sender: FDA-Public Use
  Company Number: US-BAYER-2011-075277

PATIENT
  Age: 17 Year
  Sex: Female

DRUGS (3)
  1. LEXAPRO [Concomitant]
  2. YAZ [Suspect]
     Indication: CONTRACEPTION
     Dosage: UNK
     Dates: start: 20060101, end: 20060101
  3. YAZ [Suspect]
     Indication: ACNE

REACTIONS (4)
  - ARRHYTHMIA [None]
  - THROMBOSIS [None]
  - INJURY [None]
  - SYNCOPE [None]
